FAERS Safety Report 6795482-4 (Version None)
Quarter: 2010Q2

REPORT INFORMATION
  Report Type: 
  Country: None (occurrence: None)
  Receive Date: 20100625
  Receipt Date: 20100614
  Transmission Date: 20101027
  Serious: Yes (Other)
  Sender: FDA-Public Use
  Company Number: PHHY2010US39615

PATIENT
  Sex: Female

DRUGS (2)
  1. VIVELLE-DOT [Suspect]
     Dosage: 1 MG
     Route: 062
  2. AMITRIPTYLINE [Concomitant]

REACTIONS (7)
  - BURNING SENSATION [None]
  - ERYTHEMA [None]
  - HYPERSENSITIVITY [None]
  - PALPITATIONS [None]
  - RASH [None]
  - RED MAN SYNDROME [None]
  - TREMOR [None]
